FAERS Safety Report 8960513 (Version 1)
Quarter: 2012Q4

REPORT INFORMATION
  Report Type: Spontaneous
  Country: BR (occurrence: None)
  Receive Date: 20121203
  Receipt Date: 20121203
  Transmission Date: 20130627
  Serious: Yes (Other)
  Sender: FDA-Public Use
  Company Number: DSU-2012-09353

PATIENT
  Age: 87 Year
  Sex: Female

DRUGS (3)
  1. OLMETEC HCT (HYDROCHLOROTHIAZIDE, OLMESARTAN MEDOXOMIL) (TABLET) (HYDROCHLOROTHIAZIDE, OLMESARTAN MEDOXOMIL) [Suspect]
     Indication: HYPERTENSION
     Route: 048
     Dates: start: 20101223
  2. TRIMEBUTINE MALEATE [Concomitant]
  3. PRADAXA (DABIGATRAN ETEXILATE MESILATE) [Concomitant]

REACTIONS (2)
  - Embolism [None]
  - Blood pressure decreased [None]
